FAERS Safety Report 6131435-7 (Version None)
Quarter: 2009Q1

REPORT INFORMATION
  Report Type: 
  Country: None (occurrence: None)
  Receive Date: 20090325
  Receipt Date: 20080702
  Transmission Date: 20090719
  Serious: Yes (Other)
  Sender: FDA-Public Use
  Company Number: US-BRISTOL-MYERS SQUIBB COMPANY-14242176

PATIENT
  Age: 81 Year
  Sex: Male

DRUGS (2)
  1. ERBITUX [Suspect]
     Indication: HEAD AND NECK CANCER
  2. RADIATION THERAPY [Suspect]
     Indication: HEAD AND NECK CANCER

REACTIONS (2)
  - RADIATION SKIN INJURY [None]
  - RASH [None]
